FAERS Safety Report 18305788 (Version 1)
Quarter: 2020Q3

REPORT INFORMATION
  Report Type: Spontaneous
  Country: US (occurrence: US)
  Receive Date: 20200923
  Receipt Date: 20200923
  Transmission Date: 20201103
  Serious: Yes (Other)
  Sender: FDA-Public Use
  Company Number: None

PATIENT
  Age: 62 Year
  Sex: Female
  Weight: 74.25 kg

DRUGS (3)
  1. ATENOLOL. [Concomitant]
     Active Substance: ATENOLOL
  2. ICY HOT MEDICATED NO MESS APPLICATOR [Suspect]
     Active Substance: MENTHOL
     Indication: MYALGIA
     Dosage: ?          OTHER FREQUENCY:ONCE;?
     Route: 061
     Dates: start: 20200916, end: 20200922
  3. VIT, C [Concomitant]

REACTIONS (3)
  - Skin burning sensation [None]
  - Pain of skin [None]
  - Erythema [None]

NARRATIVE: CASE EVENT DATE: 20200922
